FAERS Safety Report 20374564 (Version 1)
Quarter: 2022Q1

REPORT INFORMATION
  Report Type: Spontaneous
  Country: US (occurrence: US)
  Receive Date: 20220125
  Receipt Date: 20220125
  Transmission Date: 20220424
  Serious: No
  Sender: FDA-Public Use
  Company Number: US-JNJFOC-20220113773

PATIENT
  Age: 51 Year

DRUGS (9)
  1. TYLENOL [Suspect]
     Active Substance: ACETAMINOPHEN
     Indication: Nasal congestion
     Route: 065
     Dates: start: 20220108
  2. TYLENOL [Suspect]
     Active Substance: ACETAMINOPHEN
     Indication: Diarrhoea
  3. TYLENOL [Suspect]
     Active Substance: ACETAMINOPHEN
     Indication: Fatigue
  4. TYLENOL [Suspect]
     Active Substance: ACETAMINOPHEN
     Indication: Chest pain
  5. COVID-19 VACCINE [Concomitant]
     Indication: Product used for unknown indication
     Dosage: RIGHT ARM
     Route: 065
     Dates: start: 20220107, end: 20220107
  6. THERAFLU NOS [Concomitant]
     Active Substance: ACETAMINOPHEN AND OR DEXTROMETHORPHAN AND OR DIPHENHYDRAMINE AND OR GUAIFENESIN AND OR PHENYLEPHRINE
     Indication: Nasal congestion
     Dosage: ONE OF THE LITTLE PACKET
     Route: 065
     Dates: start: 20220108
  7. THERAFLU NOS [Concomitant]
     Active Substance: ACETAMINOPHEN AND OR DEXTROMETHORPHAN AND OR DIPHENHYDRAMINE AND OR GUAIFENESIN AND OR PHENYLEPHRINE
     Indication: Diarrhoea
  8. THERAFLU NOS [Concomitant]
     Active Substance: ACETAMINOPHEN AND OR DEXTROMETHORPHAN AND OR DIPHENHYDRAMINE AND OR GUAIFENESIN AND OR PHENYLEPHRINE
     Indication: Fatigue
  9. THERAFLU NOS [Concomitant]
     Active Substance: ACETAMINOPHEN AND OR DEXTROMETHORPHAN AND OR DIPHENHYDRAMINE AND OR GUAIFENESIN AND OR PHENYLEPHRINE
     Indication: Chest pain

REACTIONS (1)
  - Product use in unapproved indication [Unknown]

NARRATIVE: CASE EVENT DATE: 20220108
